FAERS Safety Report 7029642-4 (Version None)
Quarter: 2010Q4

REPORT INFORMATION
  Report Type: 
  Country: None (occurrence: None)
  Receive Date: 20101005
  Receipt Date: 20100922
  Transmission Date: 20110411
  Serious: Yes (Life-Threatening, Hospitalization)
  Sender: FDA-Public Use
  Company Number: JP-MERCK-1007USA01344

PATIENT
  Age: 85 Year
  Sex: Male
  Weight: 36 kg

DRUGS (3)
  1. STROMECTOL [Suspect]
     Indication: ACARODERMATITIS
     Route: 048
     Dates: start: 20100612, end: 20100612
  2. STROMECTOL [Suspect]
     Route: 048
     Dates: start: 20100619, end: 20100619
  3. STROMECTOL [Suspect]
     Route: 048
     Dates: start: 20100626, end: 20100626

REACTIONS (3)
  - OROPHARYNGEAL PAIN [None]
  - PLATELET COUNT DECREASED [None]
  - STAPHYLOCOCCAL INFECTION [None]
